FAERS Safety Report 12548392 (Version 3)
Quarter: 2016Q4

REPORT INFORMATION
  Report Type: Spontaneous
  Country: US (occurrence: US)
  Receive Date: 20160712
  Receipt Date: 20161001
  Transmission Date: 20170207
  Serious: No
  Sender: FDA-Public Use
  Company Number: US-TEVA-675420USA

PATIENT
  Age: 46 Year
  Sex: Female

DRUGS (1)
  1. FENTANYL. [Suspect]
     Active Substance: FENTANYL
     Route: 065
     Dates: start: 2012

REACTIONS (1)
  - Pain [Unknown]

NARRATIVE: CASE EVENT DATE: 201606
